FAERS Safety Report 5826627-8 (Version None)
Quarter: 2008Q3

REPORT INFORMATION
  Report Type: 
  Country: None (occurrence: None)
  Receive Date: 20080730
  Receipt Date: 20080723
  Transmission Date: 20090109
  Serious: Yes (Other)
  Sender: FDA-Public Use
  Company Number: US-RANBAXY-2008US-14217

PATIENT

DRUGS (2)
  1. ISOTRETINOIN [Suspect]
     Indication: ACNE
     Dosage: 40 MG, QD
     Route: 048
  2. VALIUM [Suspect]
     Indication: RESTLESS LEGS SYNDROME

REACTIONS (7)
  - ANGER [None]
  - DRY MOUTH [None]
  - DRY SKIN [None]
  - ECZEMA [None]
  - EPISTAXIS [None]
  - SLEEP DISORDER [None]
  - TINNITUS [None]
